FAERS Safety Report 6602285-X (Version None)
Quarter: 2010Q1

REPORT INFORMATION
  Report Type: 
  Country: None (occurrence: None)
  Receive Date: 20100225
  Receipt Date: 20100216
  Transmission Date: 20100710
  Serious: Yes (Disabling, Other)
  Sender: FDA-Public Use
  Company Number: GB-WATSON-2010-02050

PATIENT

DRUGS (5)
  1. ALENDRONATE SODIUM [Suspect]
     Indication: OSTEOPOROSIS
     Dosage: 70 MG, 1/WEEK
     Route: 048
     Dates: start: 20091001, end: 20100101
  2. ASPIRIN [Concomitant]
     Indication: AORTIC STENOSIS
     Dosage: 75 MG, UNK
     Route: 048
     Dates: start: 20070101
  3. CALFOVIT D3                        /00278001/ [Concomitant]
     Indication: OSTEOPOROSIS
     Dosage: 1 DF, UNK
     Route: 048
     Dates: start: 20091001, end: 20100101
  4. OMEPRAZOLE [Concomitant]
     Indication: GASTRIC DISORDER
     Dosage: 20 MG, UNK
     Route: 048
  5. SECURON [Concomitant]
     Indication: HYPERTENSION
     Dosage: 120 MG, UNK
     Route: 048

REACTIONS (3)
  - DECREASED APPETITE [None]
  - DYSPHAGIA [None]
  - MOUTH ULCERATION [None]
